FAERS Safety Report 15326833 (Version 6)
Quarter: 2019Q1

REPORT INFORMATION
  Report Type: Report from Study
  Country: CA (occurrence: CA)
  Receive Date: 20180828
  Receipt Date: 20190104
  Transmission Date: 20190417
  Serious: Yes (Hospitalization, Other)
  Sender: FDA-Public Use
  Company Number: CA-JNJFOC-20180608358

PATIENT
  Age: 32 Year
  Sex: Female

DRUGS (1)
  1. STELARA [Suspect]
     Active Substance: USTEKINUMAB
     Indication: CROHN^S DISEASE
     Route: 058
     Dates: start: 20180309

REACTIONS (5)
  - Drug ineffective [Unknown]
  - Abdominal infection [Unknown]
  - Drug level below therapeutic [Unknown]
  - Crohn^s disease [Not Recovered/Not Resolved]
  - Intestinal obstruction [Unknown]

NARRATIVE: CASE EVENT DATE: 2018
